FAERS Safety Report 8197734-2 (Version None)
Quarter: 2012Q1

REPORT INFORMATION
  Report Type: 
  Country: None (occurrence: None)
  Receive Date: 20120309
  Receipt Date: 20120301
  Transmission Date: 20120608
  Serious: No
  Sender: FDA-Public Use
  Company Number: US-B.I. PHARMACEUTICALS,INC./RIDGEFIELD-2011-BP-28556BP

PATIENT
  Sex: Male

DRUGS (2)
  1. SULFONYLUREA [Concomitant]
     Indication: TYPE 2 DIABETES MELLITUS
  2. TRADJENTA [Suspect]
     Indication: TYPE 2 DIABETES MELLITUS
     Dosage: 5 MG
     Route: 048
     Dates: end: 20120228

REACTIONS (2)
  - PRURITUS [None]
  - PANCREATITIS [None]
